FAERS Safety Report 16074500 (Version 1)
Quarter: 2019Q1

REPORT INFORMATION
  Report Type: Spontaneous
  Country: US (occurrence: US)
  Receive Date: 20190314
  Receipt Date: 20190314
  Transmission Date: 20190418
  Serious: Yes (Other)
  Sender: FDA-Public Use
  Company Number: US-ALLERGAN-1911336US

PATIENT
  Sex: Female

DRUGS (1)
  1. RISEDRONATE SODIUM - BP [Suspect]
     Active Substance: RISEDRONATE SODIUM
     Indication: PRODUCT USED FOR UNKNOWN INDICATION
     Dosage: 150 MG, ONCE PER MONTH
     Route: 065
     Dates: start: 201810, end: 20190215

REACTIONS (9)
  - Lethargy [Unknown]
  - Hot flush [Unknown]
  - Constipation [Unknown]
  - Injury [Unknown]
  - Influenza like illness [Unknown]
  - Loss of consciousness [Unknown]
  - Chills [Unknown]
  - Cold sweat [Unknown]
  - Vomiting [Unknown]
